FAERS Safety Report 20610551 (Version 1)
Quarter: 2022Q1

REPORT INFORMATION
  Report Type: Spontaneous
  Country: US (occurrence: None)
  Receive Date: 20220317
  Receipt Date: 20220317
  Transmission Date: 20220423
  Serious: Yes (Other)
  Sender: FDA-Public Use
  Company Number: None

PATIENT
  Age: 51 Year
  Sex: Female

DRUGS (1)
  1. DIMETHYL FUMARATE [Suspect]
     Active Substance: DIMETHYL FUMARATE
     Dosage: FREQUENCY : DAILY;?
     Route: 048
     Dates: start: 202107

REACTIONS (4)
  - Fall [None]
  - Suture insertion [None]
  - Nausea [None]
  - Pain in extremity [None]

NARRATIVE: CASE EVENT DATE: 20220317
